FAERS Safety Report 19384782 (Version 2)
Quarter: 2022Q1

REPORT INFORMATION
  Report Type: Other
  Country: CA (occurrence: CA)
  Receive Date: 20210608
  Receipt Date: 20220318
  Transmission Date: 20220423
  Serious: Yes (Hospitalization, Other)
  Sender: FDA-Public Use
  Company Number: CA-CELLTRION INC.-2021CA007436

PATIENT

DRUGS (12)
  1. RITUXIMAB [Suspect]
     Active Substance: RITUXIMAB
     Indication: Granulomatosis with polyangiitis
     Dosage: 1000 MG
     Route: 042
  2. ATIVAN [Concomitant]
     Active Substance: LORAZEPAM
  3. BENADRYL [Concomitant]
     Active Substance: DIPHENHYDRAMINE HYDROCHLORIDE
     Indication: Premedication
     Dosage: 50 MILLIGRAM
     Route: 048
  4. CYCLOSPORINE [Concomitant]
     Active Substance: CYCLOSPORINE
  5. CYCLOSPORINE [Concomitant]
     Active Substance: CYCLOSPORINE
     Route: 065
  6. DILANTIN [Concomitant]
     Active Substance: PHENYTOIN
  7. KEPPRA [Concomitant]
     Active Substance: LEVETIRACETAM
  8. LACOSAMIDE [Concomitant]
     Active Substance: LACOSAMIDE
  9. METHYLPREDNISOLONE SODIUM SUCCINATE [Concomitant]
     Active Substance: METHYLPREDNISOLONE SODIUM SUCCINATE
     Indication: Premedication
     Dosage: 100 MILLIGRAM
     Route: 042
  10. NITROGLYCERIN [Concomitant]
     Active Substance: NITROGLYCERIN
  11. NITROGLYCERIN [Concomitant]
     Active Substance: NITROGLYCERIN
     Route: 065
  12. TYLENOL [Concomitant]
     Active Substance: ACETAMINOPHEN
     Dosage: 650 MILLIGRAM
     Route: 048

REACTIONS (13)
  - Drooling [Unknown]
  - Eye disorder [Unknown]
  - Fall [Unknown]
  - Hallucination [Unknown]
  - Asthenia [Unknown]
  - Helicobacter infection [Unknown]
  - Balance disorder [Unknown]
  - Confusional state [Unknown]
  - Gait disturbance [Unknown]
  - Seizure [Unknown]
  - Visual impairment [Unknown]
  - Intentional product use issue [Unknown]
  - Off label use [Unknown]
